FAERS Safety Report 10220994 (Version 2)
Quarter: 2014Q3

REPORT INFORMATION
  Report Type: Spontaneous
  Country: GB (occurrence: GB)
  Receive Date: 20140606
  Receipt Date: 20140709
  Transmission Date: 20150326
  Serious: Yes (Death, Life-Threatening, Hospitalization, Other)
  Sender: FDA-Public Use
  Company Number: GB-ASTRAZENECA-2014SE39170

PATIENT
  Age: 77 Year
  Sex: Female
  Weight: 89 kg

DRUGS (18)
  1. SERETIDE [Concomitant]
     Active Substance: FLUTICASONE FUROATE\SALMETEROL XINAFOATE
     Route: 055
  2. TICAGRELOR [Suspect]
     Active Substance: TICAGRELOR
     Indication: THROMBOSIS IN DEVICE
     Route: 048
     Dates: start: 20131005, end: 20131125
  3. IVABRADINE HYDROCHLORIDE [Suspect]
     Active Substance: IVABRADINE HYDROCHLORIDE
     Indication: MYOCARDIAL INFARCTION
     Route: 048
     Dates: start: 20130930, end: 20131125
  4. LANSOPRAZOLE. [Suspect]
     Active Substance: LANSOPRAZOLE
     Indication: DYSPEPSIA
     Route: 048
     Dates: start: 20131025, end: 20131125
  5. GLYCERIN. [Concomitant]
     Active Substance: GLYCERIN
  6. PARACETAMOL [Concomitant]
     Active Substance: ACETAMINOPHEN
  7. SALBUTAMOL [Concomitant]
     Active Substance: ALBUTEROL
     Route: 055
  8. SENNA [Concomitant]
     Active Substance: SENNA LEAF\SENNOSIDES\SENNOSIDES A AND B
  9. GCSF [Concomitant]
     Active Substance: UNSPECIFIED INGREDIENT
  10. RAMIPRIL. [Suspect]
     Active Substance: RAMIPRIL
     Indication: MYOCARDIAL INFARCTION
     Route: 048
     Dates: start: 20130930, end: 20131125
  11. MOMETASONE [Concomitant]
     Active Substance: MOMETASONE
     Route: 045
  12. ATORVASTATIN [Concomitant]
     Active Substance: ATORVASTATIN
     Dates: end: 20131125
  13. FERROUS FUMARATE [Suspect]
     Active Substance: FERROUS FUMARATE
     Indication: IRON DEFICIENCY
     Route: 048
     Dates: start: 20131025, end: 20131125
  14. ASPIRIN. [Concomitant]
     Active Substance: ASPIRIN
  15. GTN [Concomitant]
     Active Substance: NITROGLYCERIN
  16. LACTULOSE. [Concomitant]
     Active Substance: LACTULOSE
  17. CLOPIDOGREL [Concomitant]
     Active Substance: CLOPIDOGREL BISULFATE
  18. PREDNISOLONE. [Concomitant]
     Active Substance: PREDNISOLONE
     Route: 048

REACTIONS (2)
  - Agranulocytosis [Recovered/Resolved]
  - Death [Fatal]

NARRATIVE: CASE EVENT DATE: 20131125
